FAERS Safety Report 8223375-4 (Version None)
Quarter: 2012Q1

REPORT INFORMATION
  Report Type: 
  Country: None (occurrence: None)
  Receive Date: 20120312
  Receipt Date: 20120223
  Transmission Date: 20120608
  Serious: Yes (Hospitalization)
  Sender: FDA-Public Use
  Company Number: WAES 1202USA00929

PATIENT
  Age: 70 Year
  Sex: Male

DRUGS (9)
  1. ARGAMATE JELLY [Concomitant]
  2. FAMOTIDINE [Concomitant]
  3. FERROUS CITRATE [Concomitant]
  4. ACETAMINOPHEN [Concomitant]
  5. MINOCYCLINE HCL [Concomitant]
  6. TIGASON [Concomitant]
  7. ZOLINZA [Suspect]
     Indication: MYCOSIS FUNGOIDES
     Dosage: 400 MG/DAILY/PO, 300 MG/DAILY/PO
     Route: 048
     Dates: start: 20120119
  8. ZOLINZA [Suspect]
     Indication: MYCOSIS FUNGOIDES
     Dosage: 400 MG/DAILY/PO, 300 MG/DAILY/PO
     Route: 048
     Dates: start: 20120214
  9. BROTIZOLAM [Concomitant]

REACTIONS (3)
  - DEHYDRATION [None]
  - DECREASED APPETITE [None]
  - RENAL FAILURE [None]
